FAERS Safety Report 22832728 (Version 2)
Quarter: 2024Q3

REPORT INFORMATION
  Report Type: Spontaneous
  Country: CA (occurrence: CA)
  Receive Date: 20230817
  Receipt Date: 20240708
  Transmission Date: 20241016
  Serious: Yes (Other)
  Sender: TEVA
  Company Number: CA-ABBVIE-5358787

PATIENT
  Age: 80 Year
  Sex: Female

DRUGS (2)
  1. SORIATANE [Suspect]
     Active Substance: ACITRETIN
     Indication: Product used for unknown indication
     Route: 065
  2. NEORAL [Suspect]
     Active Substance: CYCLOSPORINE
     Indication: Product used for unknown indication
     Dosage: DOSAGE TEXT: UNKNOWN
     Route: 048

REACTIONS (9)
  - Pruritus [Recovered/Resolved]
  - Tuberculosis [Recovered/Resolved]
  - Skin cancer [Recovered/Resolved]
  - Psoriasis [Recovered/Resolved]
  - Treatment failure [Recovered/Resolved]
  - Emotional distress [Recovered/Resolved]
  - Self-consciousness [Recovered/Resolved]
  - Pain of skin [Recovered/Resolved]
  - Depression [Recovered/Resolved]
